FAERS Safety Report 4457206-5 (Version None)
Quarter: 2004Q3

REPORT INFORMATION
  Report Type: 
  Country: None (occurrence: None)
  Receive Date: 20040921
  Receipt Date: 20040913
  Transmission Date: 20050211
  Serious: No
  Sender: FDA-Public Use
  Company Number: 2004UW19158

PATIENT
  Age: 60 Year
  Sex: Female
  Weight: 77.1115 kg

DRUGS (9)
  1. SEROQUEL [Suspect]
     Indication: BIPOLAR II DISORDER
     Dosage: 200 MG BID PO
     Route: 048
  2. LITHIUM [Concomitant]
  3. LAMICTAL [Concomitant]
  4. PROPOXYPHENE [Concomitant]
  5. GLUCOVANCE [Concomitant]
  6. LORAZEPAM [Concomitant]
  7. ULTRAFIX [Concomitant]
  8. AMBIEN [Concomitant]
  9. FURINOL [Concomitant]

REACTIONS (6)
  - BLOOD GLUCOSE FLUCTUATION [None]
  - DEPRESSION [None]
  - ECONOMIC PROBLEM [None]
  - SYNCOPE [None]
  - TREMOR [None]
  - VISUAL ACUITY REDUCED [None]
